FAERS Safety Report 19743308 (Version 1)
Quarter: 2021Q3

REPORT INFORMATION
  Report Type: Spontaneous
  Country: US (occurrence: US)
  Receive Date: 20210824
  Receipt Date: 20210824
  Transmission Date: 20211014
  Serious: No
  Sender: FDA-Public Use
  Company Number: US-ABBVIE-21K-163-3828558-00

PATIENT
  Sex: Male

DRUGS (1)
  1. MAVYRET [Suspect]
     Active Substance: GLECAPREVIR\PIBRENTASVIR
     Indication: PRODUCT USED FOR UNKNOWN INDICATION
     Route: 048

REACTIONS (18)
  - Hypoaesthesia [Unknown]
  - Arthralgia [Unknown]
  - Post-traumatic pain [Unknown]
  - Neck pain [Not Recovered/Not Resolved]
  - Feeling abnormal [Unknown]
  - Hot flush [Unknown]
  - Abdominal pain upper [Unknown]
  - Posture abnormal [Unknown]
  - Memory impairment [Unknown]
  - Pain [Unknown]
  - Disturbance in attention [Unknown]
  - Paraesthesia [Unknown]
  - Injury [Unknown]
  - Arthralgia [Not Recovered/Not Resolved]
  - Influenza [Unknown]
  - Mobility decreased [Not Recovered/Not Resolved]
  - Chills [Unknown]
  - Back pain [Not Recovered/Not Resolved]

NARRATIVE: CASE EVENT DATE: 202102
